FAERS Safety Report 6504980-X (Version None)
Quarter: 2009Q4

REPORT INFORMATION
  Report Type: 
  Country: None (occurrence: None)
  Receive Date: 20091218
  Receipt Date: 20091208
  Transmission Date: 20100525
  Serious: Yes (Hospitalization, Other)
  Sender: FDA-Public Use
  Company Number: US-NOVOPROD-301879

PATIENT
  Sex: Female
  Weight: 61.678 kg

DRUGS (6)
  1. VAGIFEM [Suspect]
     Indication: HORMONE REPLACEMENT THERAPY
     Dosage: 1 EVERY 4 DAYS
     Route: 067
  2. XANAX [Concomitant]
     Indication: PANIC ATTACK
     Dosage: 2 MG, QD
     Route: 048
  3. PAXIL [Concomitant]
     Indication: PANIC ATTACK
     Dosage: 40 MG, QID
     Route: 048
  4. REMERON [Concomitant]
     Indication: PANIC ATTACK
     Dosage: 30 MG, QD
     Route: 048
  5. METHAMIZOL [Concomitant]
     Indication: THYROID DISORDER
     Dosage: 5 MG, QOD
     Route: 048
  6. VITAMIN A [Concomitant]
     Indication: VITAMIN D DEFICIENCY
     Dosage: UNK
     Route: 048

REACTIONS (1)
  - BENIGN OVARIAN TUMOUR [None]
